FAERS Safety Report 7953747-4 (Version None)
Quarter: 2011Q4

REPORT INFORMATION
  Report Type: 
  Country: None (occurrence: None)
  Receive Date: 20111129
  Receipt Date: 20111114
  Transmission Date: 20120403
  Serious: Yes (Hospitalization, Disabling, Other)
  Sender: FDA-Public Use
  Company Number: 2009AL002568

PATIENT
  Age: 45 Year
  Sex: Male
  Weight: 114.76 kg

DRUGS (44)
  1. ACETAMINOPHEN [Concomitant]
  2. INDOCIN [Concomitant]
  3. HYDRALAZINE HCL [Concomitant]
  4. ZOCOR [Concomitant]
  5. SPIRONOLACTONE [Concomitant]
  6. LORAZEPAM [Concomitant]
  7. NIFEDIPINE [Concomitant]
  8. ALDACTONE [Concomitant]
  9. NITROGLYCERIN [Concomitant]
  10. INSULIN [Concomitant]
  11. NIASPAN [Concomitant]
  12. POTASSIUM CHLORIDE [Concomitant]
  13. DIGOXIN [Suspect]
     Dosage: 0.25 MG;QD;PO
     Route: 048
     Dates: start: 20050118, end: 20090708
  14. ATROVENT [Concomitant]
  15. SODIUM CHLORIDE [Concomitant]
  16. ASPIRIN [Concomitant]
  17. DOXYCYCLINE [Concomitant]
  18. LEXAPRO [Concomitant]
  19. ALTACE [Concomitant]
  20. ISOSORBIDE DINITRATE [Concomitant]
  21. VIAGRA [Concomitant]
  22. LASIX [Concomitant]
  23. LISINOPRIL [Concomitant]
  24. PREDNISOLONE [Concomitant]
  25. AMBIEN [Concomitant]
  26. TESTOSTERONE [Concomitant]
  27. POTASSIUM CHLORIDE [Concomitant]
  28. LIPITOR [Concomitant]
  29. BUPROPION HCL [Concomitant]
  30. XANAX [Concomitant]
  31. DIURETICS [Concomitant]
  32. ALBUTEROL [Concomitant]
  33. PROAIR HFA [Concomitant]
  34. DOXYCYCLINE HYCLATE [Concomitant]
  35. PREDNISONE TAB [Concomitant]
  36. NORVASC [Concomitant]
  37. LOTREL [Concomitant]
  38. CIALIS [Concomitant]
  39. TRICOR [Concomitant]
  40. LABETALOL HCL [Concomitant]
  41. TOPROL-XL [Concomitant]
  42. TOPROL-XL [Concomitant]
  43. ATIVAN [Concomitant]
  44. LABETALOL HCL [Concomitant]

REACTIONS (74)
  - ECONOMIC PROBLEM [None]
  - COUGH [None]
  - LEFT ATRIAL DILATATION [None]
  - VISION BLURRED [None]
  - ACUTE CORONARY SYNDROME [None]
  - PALLOR [None]
  - HYPERLIPIDAEMIA [None]
  - INTERMITTENT CLAUDICATION [None]
  - MITRAL VALVE INCOMPETENCE [None]
  - TROPONIN INCREASED [None]
  - BLOOD POTASSIUM DECREASED [None]
  - RIGHT ATRIAL DILATATION [None]
  - VISUAL IMPAIRMENT [None]
  - CORONARY ARTERY DISEASE [None]
  - MALIGNANT HYPERTENSION [None]
  - RETINAL VASCULAR THROMBOSIS [None]
  - VERTIGO [None]
  - HYPOKALAEMIA [None]
  - ELECTROCARDIOGRAM REPOLARISATION ABNORMALITY [None]
  - WHEEZING [None]
  - CARDIAC FAILURE CONGESTIVE [None]
  - LEFT VENTRICULAR HYPERTROPHY [None]
  - DIZZINESS [None]
  - BLINDNESS UNILATERAL [None]
  - MYOCARDIAL ISCHAEMIA [None]
  - FATIGUE [None]
  - HYPOAESTHESIA [None]
  - ARRHYTHMIA [None]
  - PULMONARY CONGESTION [None]
  - BRONCHITIS [None]
  - DYSPNOEA [None]
  - GOUTY ARTHRITIS [None]
  - CHEST DISCOMFORT [None]
  - MYOCARDIAL INFARCTION [None]
  - CHEST PAIN [None]
  - HYPERHIDROSIS [None]
  - PALPITATIONS [None]
  - PULMONARY VALVE INCOMPETENCE [None]
  - TRICUSPID VALVE INCOMPETENCE [None]
  - GALLOP RHYTHM PRESENT [None]
  - RALES [None]
  - RESPIRATORY RATE INCREASED [None]
  - INJURY [None]
  - ASTHENIA [None]
  - TREATMENT NONCOMPLIANCE [None]
  - CONDITION AGGRAVATED [None]
  - PRESYNCOPE [None]
  - CHRONIC OBSTRUCTIVE PULMONARY DISEASE [None]
  - SINUS TACHYCARDIA [None]
  - LEFT VENTRICULAR DYSFUNCTION [None]
  - BLOOD CREATINE INCREASED [None]
  - AORTIC VALVE INCOMPETENCE [None]
  - BLOOD UREA INCREASED [None]
  - PRODUCT QUALITY ISSUE [None]
  - RETINAL HAEMORRHAGE [None]
  - ISCHAEMIC CARDIOMYOPATHY [None]
  - ANGINA UNSTABLE [None]
  - SLEEP APNOEA SYNDROME [None]
  - PAIN IN EXTREMITY [None]
  - BRONCHIAL HYPERREACTIVITY [None]
  - HYPERGLYCAEMIA [None]
  - CARDIAC MURMUR [None]
  - PULMONARY HYPERTENSION [None]
  - CARDIOACTIVE DRUG LEVEL DECREASED [None]
  - HYPERTENSIVE CARDIOMYOPATHY [None]
  - INSOMNIA [None]
  - BLOOD TRIGLYCERIDES INCREASED [None]
  - CONDUCTION DISORDER [None]
  - DEHYDRATION [None]
  - ORTHOSTATIC HYPOTENSION [None]
  - CEREBROVASCULAR ACCIDENT [None]
  - ELECTROCARDIOGRAM ST SEGMENT ABNORMAL [None]
  - OXYGEN SATURATION DECREASED [None]
  - ANDROGEN DEFICIENCY [None]
